FAERS Safety Report 4163665 (Version 2)
Quarter: 2013Q2

REPORT INFORMATION
  Report Type: Spontaneous
  Country: US (occurrence: None)
  Receive Date: 20040607
  Receipt Date: 20121123
  Transmission Date: 20140414
  Serious: No
  Sender: FDA-Public Use
  Company Number: 356199

PATIENT
  Sex: Male

DRUGS (1)
  1. VICTOZA (LIRAGLUTIDE) SOLUTION FOR INJECTION, 6MG/ML [Suspect]
     Indication: PRODUCT USED FOR UNKNOWN INDICATION
     Dosage: ORAL
     Route: 058

REACTIONS (6)
  - PREGNANCY [None]
  - ABORTION INDUCED [None]
  - Decreased appetite [None]
  - Eructation [None]
  - Nausea [None]
  - Blood glucose increased [None]
